FAERS Safety Report 5502837-4 (Version None)
Quarter: 2007Q4

REPORT INFORMATION
  Report Type: 
  Country: None (occurrence: None)
  Receive Date: 20071029
  Receipt Date: 20071018
  Transmission Date: 20080405
  Serious: Yes (Other)
  Sender: FDA-Public Use
  Company Number: CHPA2007US11055

PATIENT
  Sex: Female

DRUGS (1)
  1. EXCEDRIN (MIGRAINE) [Suspect]
     Dosage: 12 DF
     Dates: start: 20070101, end: 20070101

REACTIONS (3)
  - ABDOMINAL PAIN UPPER [None]
  - HAEMATEMESIS [None]
  - OVERDOSE [None]
